FAERS Safety Report 9448851 (Version 1)
Quarter: 2013Q3

REPORT INFORMATION
  Report Type: Spontaneous
  Country: FR (occurrence: FR)
  Receive Date: 20130808
  Receipt Date: 20130808
  Transmission Date: 20140515
  Serious: Yes (Death, Hospitalization, Other)
  Sender: FDA-Public Use
  Company Number: FR-ELI_LILLY_AND_COMPANY-FR201307008293

PATIENT
  Age: 72 Year
  Sex: Male

DRUGS (3)
  1. GEMZAR [Suspect]
     Indication: BLADDER CANCER
     Dosage: UNK
     Route: 042
     Dates: start: 201301
  2. PLAVIX [Concomitant]
     Dosage: 75 MG, QD
     Dates: start: 20020311
  3. ATACAND [Concomitant]
     Dosage: 8 MG, QD
     Dates: start: 20020311

REACTIONS (4)
  - Interstitial lung disease [Fatal]
  - Pulmonary alveolar haemorrhage [Unknown]
  - Thrombocytopenia [Unknown]
  - Cerebrovascular accident [Unknown]
